FAERS Safety Report 4387052-2 (Version None)
Quarter: 2004Q2

REPORT INFORMATION
  Report Type: 
  Country: None (occurrence: None)
  Receive Date: 20040630
  Receipt Date: 20040302
  Transmission Date: 20050107
  Serious: No
  Sender: FDA-Public Use
  Company Number: US-GLAXOSMITHKLINE-A0500712A

PATIENT
  Age: 75 Year
  Sex: Male

DRUGS (5)
  1. ADVAIR HFA [Suspect]
     Indication: ILL-DEFINED DISORDER
     Route: 055
     Dates: start: 20040218
  2. REQUIP [Concomitant]
     Dosage: 3MGM THREE TIMES PER DAY
  3. NEXIUM [Concomitant]
     Dosage: 40MG IN THE MORNING
  4. ZOLOFT [Concomitant]
     Dosage: 50MG IN THE MORNING
  5. ARICEPT [Concomitant]
     Dosage: 10MG IN THE MORNING

REACTIONS (2)
  - DRUG INEFFECTIVE [None]
  - PHARMACEUTICAL PRODUCT COMPLAINT [None]
